FAERS Safety Report 4726293-9 (Version None)
Quarter: 2005Q3

REPORT INFORMATION
  Report Type: 
  Country: None (occurrence: None)
  Receive Date: 20050721
  Receipt Date: 20050707
  Transmission Date: 20060218
  Serious: Yes (Hospitalization)
  Sender: FDA-Public Use
  Company Number: 2005BI008111

PATIENT
  Age: 58 Year
  Sex: Male

DRUGS (9)
  1. AMEVIVE [Suspect]
     Indication: PSORIASIS
     Dosage: 15 MG;QW;IM
     Route: 030
     Dates: start: 20041022, end: 20050126
  2. NEXIUM [Concomitant]
  3. SYNTHROID [Concomitant]
  4. ALLOPURINOL [Concomitant]
  5. DOXAZOSIN [Concomitant]
  6. ALLEGRA-D [Concomitant]
  7. BISOPROLOL FUMARATE AND HYDROCHLOROTHIAZIDE [Concomitant]
  8. CELEBREX [Concomitant]
  9. EFFEXOR [Concomitant]

REACTIONS (2)
  - BRONCHOPNEUMONIA [None]
  - CD4 LYMPHOCYTES DECREASED [None]
